FAERS Safety Report 6310515-7 (Version None)
Quarter: 2009Q3

REPORT INFORMATION
  Report Type: 
  Country: None (occurrence: None)
  Receive Date: 20090811
  Receipt Date: 20090619
  Transmission Date: 20100115
  Serious: Yes (Other)
  Sender: FDA-Public Use
  Company Number: 1000006942

PATIENT

DRUGS (2)
  1. SAVELLA [Suspect]
  2. CHANTIX [Concomitant]

REACTIONS (1)
  - SEROTONIN SYNDROME [None]
